FAERS Safety Report 6813334-8 (Version None)
Quarter: 2010Q2

REPORT INFORMATION
  Report Type: 
  Country: None (occurrence: None)
  Receive Date: 20100628
  Receipt Date: 20100617
  Transmission Date: 20101027
  Serious: Yes (Hospitalization)
  Sender: FDA-Public Use
  Company Number: 1000013555

PATIENT
  Age: 70 Year
  Sex: Male
  Weight: 69.1 kg

DRUGS (10)
  1. MILNACIPRAN (MILNACIPRAN HYDROCHLORIDE) [Suspect]
     Indication: FIBROMYALGIA
     Dosage: ORAL
     Route: 048
     Dates: start: 20100107, end: 20100407
  2. MILNACIPRAN (OPEN-LABEL) (MILNACIPRAN HYDROCHLORIDE) [Suspect]
     Indication: FIBROMYALGIA
     Dosage: 150 MG, ORAL
     Route: 048
     Dates: start: 20091210, end: 20100106
  3. MULTI-VITAMIN [Concomitant]
  4. CALCIUM WITH D [Concomitant]
  5. VITAMIN C [Concomitant]
  6. ASPIRIN [Concomitant]
  7. FISH OIL [Concomitant]
  8. ATENOLOL [Concomitant]
  9. IBUPROFEN [Concomitant]
  10. LUNESTA [Concomitant]

REACTIONS (15)
  - AORTIC VALVE SCLEROSIS [None]
  - ATRIAL TACHYCARDIA [None]
  - BALANCE DISORDER [None]
  - CARDIAC FAILURE CONGESTIVE [None]
  - DIASTOLIC DYSFUNCTION [None]
  - DIZZINESS [None]
  - DYSPNOEA [None]
  - LEFT VENTRICULAR HYPERTROPHY [None]
  - MITRAL VALVE INCOMPETENCE [None]
  - MITRAL VALVE SCLEROSIS [None]
  - OEDEMA PERIPHERAL [None]
  - PULMONARY HYPERTENSION [None]
  - SINUS BRADYCARDIA [None]
  - SUPRAVENTRICULAR EXTRASYSTOLES [None]
  - TRICUSPID VALVE INCOMPETENCE [None]
